FAERS Safety Report 7726188-2 (Version None)
Quarter: 2011Q3

REPORT INFORMATION
  Report Type: 
  Country: None (occurrence: None)
  Receive Date: 20110902
  Receipt Date: 20110824
  Transmission Date: 20111222
  Serious: Yes (Death, Other)
  Sender: FDA-Public Use
  Company Number: PHHY2011GB24973

PATIENT
  Sex: Female

DRUGS (12)
  1. ROPINIROLE [Suspect]
     Route: 048
  2. DIGOXIN [Concomitant]
     Route: 048
  3. FUROSEMIDE [Concomitant]
     Route: 048
  4. SPARTEINE [Concomitant]
  5. AMOXICILLIN [Concomitant]
     Indication: PARKINSON'S DISEASE
  6. ASPIRIN [Concomitant]
  7. SINEMET [Concomitant]
     Route: 048
  8. RISPERIDONE [Suspect]
     Route: 048
  9. BISOPROLOL FUMARATE [Concomitant]
  10. CARBIMAZOLE [Concomitant]
  11. FORTISIP [Concomitant]
     Route: 048
  12. FERROUS SULFATE TAB [Concomitant]
     Route: 048

REACTIONS (2)
  - DEATH [None]
  - MEDICATION ERROR [None]
